FAERS Safety Report 25385933 (Version 1)
Quarter: 2025Q2

REPORT INFORMATION
  Report Type: Spontaneous
  Country: MY (occurrence: None)
  Receive Date: 20250531
  Receipt Date: 20250531
  Transmission Date: 20250717
  Serious: Yes (Death)
  Sender: FDA-CTU
  Company Number: None

PATIENT
  Age: 77 Year
  Sex: Male
  Weight: 42 kg

DRUGS (2)
  1. MEMANTINE HYDROCHLORIDE [Suspect]
     Active Substance: MEMANTINE HYDROCHLORIDE
     Indication: Dementia Alzheimer^s type
     Dosage: FREQUENCY : DAILY;?
     Route: 048
     Dates: start: 20191215, end: 20241110
  2. DONEPEZIL [Suspect]
     Active Substance: DONEPEZIL

REACTIONS (4)
  - Aggression [None]
  - Pneumonia [None]
  - Neutropenic sepsis [None]
  - Klebsiella test positive [None]

NARRATIVE: CASE EVENT DATE: 20241011
